FAERS Safety Report 20037740 (Version 1)
Quarter: 2021Q4

REPORT INFORMATION
  Report Type: Spontaneous
  Country: CN (occurrence: CN)
  Receive Date: 20211105
  Receipt Date: 20211105
  Transmission Date: 20220304
  Serious: Yes (Death)
  Sender: FDA-Public Use
  Company Number: CN-HQ SPECIALTY-CN-2021INT000204

PATIENT

DRUGS (4)
  1. CISPLATIN [Suspect]
     Active Substance: CISPLATIN
     Indication: Squamous cell carcinoma of head and neck
     Dosage: 75 MG/M2, DAY 1
     Route: 042
  2. FLUOROURACIL [Suspect]
     Active Substance: FLUOROURACIL
     Indication: Squamous cell carcinoma of head and neck
     Dosage: 750 MG/M2, DAYS 1-5
     Route: 042
  3. CETUXIMAB [Suspect]
     Active Substance: CETUXIMAB
     Indication: Squamous cell carcinoma of head and neck
     Dosage: 400 MG/M2, DAY 1, FIRST DOSE
     Route: 065
  4. CETUXIMAB [Suspect]
     Active Substance: CETUXIMAB
     Dosage: 250 MG/M2, DAY1,8, AND 15 OF EACH CYCLE, FOR ALL SUBSEQUENT WEEKLY DOSES
     Route: 065

REACTIONS (1)
  - Dyspnoea [Fatal]
